FAERS Safety Report 9809173 (Version 1)
Quarter: 2014Q1

REPORT INFORMATION
  Report Type: Spontaneous
  Country: IT (occurrence: ES)
  Receive Date: 20140110
  Receipt Date: 20140110
  Transmission Date: 20141002
  Serious: Yes (Other)
  Sender: FDA-Public Use
  Company Number: ES-FRI-1000052777

PATIENT
  Age: 50 Year
  Sex: Female

DRUGS (1)
  1. MONUROL [Suspect]
     Indication: URINARY TRACT INFECTION
     Dosage: 3 GRAM
     Route: 048
     Dates: start: 20130211, end: 20130211

REACTIONS (4)
  - Lymphadenopathy [Recovering/Resolving]
  - Dyspnoea [Recovering/Resolving]
  - Sinus tachycardia [Recovering/Resolving]
  - Rash pruritic [Recovering/Resolving]
